FAERS Safety Report 5961187-2 (Version None)
Quarter: 2008Q4

REPORT INFORMATION
  Report Type: 
  Country: None (occurrence: None)
  Receive Date: 20081121
  Receipt Date: 20081117
  Transmission Date: 20090506
  Serious: Yes (Hospitalization)
  Sender: FDA-Public Use
  Company Number: US-BIOGENIDEC-2006BI018551

PATIENT
  Age: 49 Year
  Sex: Female

DRUGS (1)
  1. TYSABRI [Suspect]
     Indication: MULTIPLE SCLEROSIS
     Route: 042
     Dates: start: 20060918

REACTIONS (6)
  - ASTHENIA [None]
  - CLOSTRIDIAL INFECTION [None]
  - MULTIPLE SCLEROSIS RELAPSE [None]
  - SEDATION [None]
  - SEPSIS [None]
  - URINARY TRACT INFECTION [None]
